FAERS Safety Report 8586690-0 (Version None)
Quarter: 2012Q3

REPORT INFORMATION
  Report Type: 
  Country: None (occurrence: None)
  Receive Date: 20120810
  Receipt Date: 20120730
  Transmission Date: 20120928
  Serious: Yes (Hospitalization, Other)
  Sender: FDA-Public Use
  Company Number: AR-PFIZER INC-2012036242

PATIENT
  Age: 68 Year
  Sex: Male
  Weight: 71.5 kg

DRUGS (7)
  1. FLUOROURACIL [Suspect]
     Indication: COLORECTAL CANCER METASTATIC
     Dosage: 400 MG/M2, CYCLIC, DAY 1 EVERY 14 DAYS
     Route: 040
     Dates: start: 20120109
  2. AMIODARONE [Concomitant]
     Indication: ATRIAL FIBRILLATION
     Dosage: UNK
     Dates: start: 20110524
  3. BLINDED THERAPY [Suspect]
     Indication: COLORECTAL CANCER METASTATIC
     Dosage: UNK
     Dates: start: 20120109
  4. IRINOTECAN HCL [Suspect]
     Indication: COLORECTAL CANCER METASTATIC
     Dosage: 180 MG/M2, CYCLIC, DAY 1 EVERY 14 DAYS
     Route: 042
     Dates: start: 20120109
  5. FLUOROURACIL [Suspect]
     Dosage: 2400 MG/M2, CYCLIC, DAY 1 AND 2 EVERY 14 DAYS
     Route: 042
     Dates: start: 20120109
  6. LEUCOVORIN CALCIUM [Suspect]
     Indication: COLORECTAL CANCER METASTATIC
     Dosage: 400 MG/M2, CYCLIC, DAY 1 EVERY 14 DAYS
     Route: 042
     Dates: start: 20120109
  7. TAMSULOSIN [Concomitant]
     Indication: BENIGN PROSTATIC HYPERPLASIA
     Dosage: UNK
     Dates: start: 20100701

REACTIONS (2)
  - HEPATOTOXICITY [None]
  - PYREXIA [None]
